FAERS Safety Report 14176337 (Version 1)
Quarter: 2017Q4

REPORT INFORMATION
  Report Type: Spontaneous
  Country: DE (occurrence: DE)
  Receive Date: 20171109
  Receipt Date: 20171109
  Transmission Date: 20180321
  Serious: Yes (Life-Threatening, Hospitalization, Other)
  Sender: FDA-Public Use
  Company Number: DE-SEATTLE GENETICS-2014MPI00575

PATIENT
  Age: 64 Year
  Sex: Male
  Weight: 70 kg

DRUGS (3)
  1. BETABLOCKING AGENT [Concomitant]
     Indication: TACHYCARDIA
  2. ADCETRIS [Suspect]
     Active Substance: BRENTUXIMAB VEDOTIN
     Indication: ANAPLASTIC LARGE-CELL LYMPHOMA
     Dosage: 1.8 MG/KG, Q21D
     Route: 042
     Dates: start: 20140206
  3. DIGOXIN. [Concomitant]
     Active Substance: DIGOXIN
     Indication: TACHYCARDIA
     Dosage: UNK

REACTIONS (8)
  - Pyrexia [Recovered/Resolved]
  - Cytokine release syndrome [Recovered/Resolved]
  - Fall [Recovered/Resolved]
  - Chills [Recovered/Resolved]
  - Shock [Recovered/Resolved]
  - Confusional state [Recovered/Resolved]
  - Systemic inflammatory response syndrome [Recovered/Resolved]
  - Cardiovascular insufficiency [Recovered/Resolved]

NARRATIVE: CASE EVENT DATE: 20140206
